FAERS Safety Report 5447513-1 (Version None)
Quarter: 2007Q3

REPORT INFORMATION
  Report Type: 
  Country: None (occurrence: None)
  Receive Date: 20070910
  Receipt Date: 20070903
  Transmission Date: 20080115
  Serious: Yes (Hospitalization)
  Sender: FDA-Public Use
  Company Number: B0485551A

PATIENT
  Age: 87 Year
  Sex: Female

DRUGS (6)
  1. PAROXETINE HCL [Suspect]
     Indication: DRUG USE FOR UNKNOWN INDICATION
     Dosage: 20MG PER DAY
     Route: 048
  2. IRBESARTAN [Suspect]
     Dosage: 150MG PER DAY
     Route: 048
  3. NEXIUM [Concomitant]
     Route: 065
  4. NEURONTIN [Concomitant]
     Route: 065
  5. SOLU-MEDROL [Concomitant]
     Route: 065
  6. ACTISKENAN [Concomitant]
     Route: 065

REACTIONS (6)
  - BLOOD OSMOLARITY INCREASED [None]
  - BLOOD UREA INCREASED [None]
  - DEHYDRATION [None]
  - DYSPNOEA [None]
  - GENERAL PHYSICAL HEALTH DETERIORATION [None]
  - OXYGEN SATURATION DECREASED [None]
